FAERS Safety Report 4859668-8 (Version None)
Quarter: 2005Q4

REPORT INFORMATION
  Report Type: 
  Country: None (occurrence: None)
  Receive Date: 20051219
  Receipt Date: 20051208
  Transmission Date: 20060501
  Serious: Yes (Other)
  Sender: FDA-Public Use
  Company Number: US-JNJFOC-20051202416

PATIENT
  Sex: Female
  Weight: 59.88 kg

DRUGS (14)
  1. INFLIXIMAB [Suspect]
     Indication: RHEUMATOID ARTHRITIS
     Route: 042
  2. HUMIRA [Concomitant]
  3. RELAFEN [Concomitant]
  4. MULTIVITAMIN [Concomitant]
  5. MULTIVITAMIN [Concomitant]
  6. MULTIVITAMIN [Concomitant]
  7. MULTIVITAMIN [Concomitant]
  8. MULTIVITAMIN [Concomitant]
  9. MULTIVITAMIN [Concomitant]
  10. MULTIVITAMIN [Concomitant]
  11. MULTIVITAMIN [Concomitant]
  12. TRIPHASIL-28 [Concomitant]
  13. TRIPHASIL-28 [Concomitant]
     Dosage: ^28^ DAILY
  14. PREVACID [Concomitant]

REACTIONS (1)
  - CERVIX CARCINOMA RECURRENT [None]
